FAERS Safety Report 5403566-8 (Version None)
Quarter: 2007Q3

REPORT INFORMATION
  Report Type: 
  Country: None (occurrence: None)
  Receive Date: 20070730
  Receipt Date: 20070717
  Transmission Date: 20080115
  Serious: Yes (Disabling, Congenital Anomaly)
  Sender: FDA-Public Use
  Company Number: GXKR2007GB06199

PATIENT
  Sex: Female

DRUGS (2)
  1. CITALOPRAM HYDROBROMIDE [Suspect]
     Indication: ANXIETY
     Dosage: 20 MG, TRANSPLACENTAL
     Route: 064
     Dates: start: 20020801
  2. ST. JOHN'S WORT (HYPERICUM PERFORATUM) [Concomitant]

REACTIONS (2)
  - ACQUIRED EPILEPTIC APHASIA [None]
  - TRANSMISSION OF DRUG VIA SEMEN [None]
